FAERS Safety Report 4305494-8 (Version None)
Quarter: 2004Q1

REPORT INFORMATION
  Report Type: 
  Country: None (occurrence: None)
  Receive Date: 20040226
  Receipt Date: 20031103
  Transmission Date: 20041129
  Serious: No
  Sender: FDA-Public Use
  Company Number: US-BRISTOL-MYERS SQUIBB COMPANY-12424917

PATIENT
  Age: 43 Year
  Sex: Male
  Weight: 116 kg

DRUGS (10)
  1. ABILIFY [Suspect]
     Indication: SCHIZOAFFECTIVE DISORDER
     Dosage: INITIATED AT 10 MG/DAY ON 25-OCT-2003, INCREASED TO 20 MG/DAY ON 30-OCT-2003
     Route: 048
     Dates: start: 20031025
  2. METFORMIN HCL [Concomitant]
     Dosage: SPECIFIC DOSING NOT REPORTED
  3. ACTOS [Concomitant]
  4. HYDROCHLOROTHIAZIDE [Concomitant]
     Dosage: DOSAGE FORM = 1/2 TABLET
  5. ASPIRIN [Concomitant]
  6. PRAVACHOL [Concomitant]
  7. CLONIDINE [Concomitant]
  8. DILTIAZEM HCL [Concomitant]
  9. MICARDIS [Concomitant]
  10. ZOLOFT [Concomitant]

REACTIONS (6)
  - DECREASED APPETITE [None]
  - FACTITIOUS DISORDER [None]
  - INSOMNIA [None]
  - MUSCULAR WEAKNESS [None]
  - PAIN [None]
  - RESTLESSNESS [None]
